FAERS Safety Report 4313585-0 (Version None)
Quarter: 2004Q1

REPORT INFORMATION
  Report Type: 
  Country: None (occurrence: None)
  Receive Date: 20040304
  Receipt Date: 20040213
  Transmission Date: 20041129
  Serious: Yes (Other)
  Sender: FDA-Public Use
  Company Number: USA030948116

PATIENT
  Age: 83 Year
  Sex: Female
  Weight: 58 kg

DRUGS (1)
  1. EVISTA [Suspect]
     Indication: OSTEOPOROSIS
     Dosage: 60 MG/DAY
     Dates: start: 19981201, end: 20030701

REACTIONS (1)
  - BREAST CANCER IN SITU [None]
